FAERS Safety Report 9109767 (Version 1)
Quarter: 2013Q1

REPORT INFORMATION
  Report Type: Spontaneous
  Country: US (occurrence: US)
  Receive Date: 20130222
  Receipt Date: 20130222
  Transmission Date: 20140127
  Serious: Yes (Hospitalization)
  Sender: FDA-Public Use
  Company Number: US-UCBSA-078613

PATIENT
  Age: 42 Year
  Sex: Female

DRUGS (1)
  1. CIMZIA [Suspect]
     Indication: RHEUMATOID ARTHRITIS
     Dosage: 200 MG FOR FIRST INITIAL DOSE
     Dates: start: 20130122

REACTIONS (2)
  - Intracranial aneurysm [Recovered/Resolved]
  - Incorrect dose administered [Recovered/Resolved]
